FAERS Safety Report 4349940-2 (Version None)
Quarter: 2004Q2

REPORT INFORMATION
  Report Type: 
  Country: None (occurrence: None)
  Receive Date: 20040426
  Receipt Date: 20031009
  Transmission Date: 20050107
  Serious: Yes (Other)
  Sender: FDA-Public Use
  Company Number: 430037M03USA

PATIENT
  Age: 50 Year
  Sex: Female

DRUGS (2)
  1. NOVANTRONE [Suspect]
     Indication: MULTIPLE SCLEROSIS
     Dosage: 10 MG/M2, 1 IN 1 DAYS, INTRAVENOUS
     Route: 042
  2. ALL OTHER THERAPEUTIC PRODUCTS [Concomitant]

REACTIONS (3)
  - ACCIDENTAL EXPOSURE [None]
  - MEDICATION ERROR [None]
  - NO ADVERSE DRUG EFFECT [None]
